FAERS Safety Report 24725379 (Version 1)
Quarter: 2024Q4

REPORT INFORMATION
  Report Type: Spontaneous
  Country: TW (occurrence: TW)
  Receive Date: 20241212
  Receipt Date: 20241212
  Transmission Date: 20250115
  Serious: Yes (Other)
  Sender: CHEPLAPHARM
  Company Number: TW-ROCHE-10000145223

PATIENT
  Age: 67 Year
  Sex: Female

DRUGS (17)
  1. CAPECITABINE [Suspect]
     Active Substance: CAPECITABINE
     Indication: Invasive ductal breast carcinoma
     Dosage: UNKNOWN DOSE
  2. PACLITAXEL [Suspect]
     Active Substance: PACLITAXEL
     Indication: Invasive ductal breast carcinoma
     Dosage: UNKNOWN DOSE
  3. HERCEPTIN [Suspect]
     Active Substance: TRASTUZUMAB
     Indication: Invasive ductal breast carcinoma
     Dosage: UNKNOWN DOSE
  4. PERJETA [Suspect]
     Active Substance: PERTUZUMAB
     Indication: Invasive ductal breast carcinoma
     Dosage: UNKNOWN DOSE
  5. DOXORUBICIN [Suspect]
     Active Substance: DOXORUBICIN
     Indication: Invasive ductal breast carcinoma
     Dosage: UNKNOWN DOSE
  6. LAPATINIB [Suspect]
     Active Substance: LAPATINIB
     Indication: Invasive ductal breast carcinoma
  7. LEUCOVORIN [Suspect]
     Active Substance: LEUCOVORIN\LEUCOVORIN CALCIUM
     Indication: Invasive ductal breast carcinoma
     Dosage: UNKNOWN DOSE
  8. TAMOXIFEN [Suspect]
     Active Substance: TAMOXIFEN
     Indication: Invasive ductal breast carcinoma
     Dosage: UNKNOWN DOSE
  9. GEMCITABINE [Suspect]
     Active Substance: GEMCITABINE
     Indication: Invasive ductal breast carcinoma
     Dosage: UNKNOWN DOSE
  10. TEGAFUR [Suspect]
     Active Substance: TEGAFUR
     Indication: Invasive ductal breast carcinoma
     Dosage: UNKNOWN DOSE
  11. FLUOROURACIL [Suspect]
     Active Substance: FLUOROURACIL
     Indication: Invasive ductal breast carcinoma
     Dosage: UNKNOWN DOSE
  12. TAXOTERE [Suspect]
     Active Substance: DOCETAXEL
     Indication: Invasive ductal breast carcinoma
     Dosage: UNKNOWN DOSE
  13. CEFIXIME [Suspect]
     Active Substance: CEFIXIME
     Indication: Invasive ductal breast carcinoma
     Dosage: UNKNOWN DOSE
  14. NAVELBINE [Suspect]
     Active Substance: VINORELBINE TARTRATE
     Indication: Invasive ductal breast carcinoma
     Dosage: UNKNOWN DOSE
  15. URACIL [Suspect]
     Active Substance: URACIL
     Indication: Invasive ductal breast carcinoma
     Dosage: UNKNOWN DOSE
  16. CYCLOPHOSPHAMIDE [Suspect]
     Active Substance: CYCLOPHOSPHAMIDE
     Indication: Invasive ductal breast carcinoma
     Dosage: UNKNOWN DOSE
  17. METHOTREXATE [Suspect]
     Active Substance: METHOTREXATE

REACTIONS (20)
  - Metastases to skin [Unknown]
  - Jaundice cholestatic [Recovering/Resolving]
  - Skin cancer [Unknown]
  - Breast cancer in situ [Unknown]
  - Metastases to lymph nodes [Unknown]
  - Metastases to chest wall [Unknown]
  - Bile duct stenosis [Unknown]
  - Metastatic neoplasm [Unknown]
  - Metastases to bone [Unknown]
  - Cholelithiasis [Unknown]
  - Adenomyosis [Unknown]
  - Hypertension [Unknown]
  - Itching scar [Unknown]
  - Alanine aminotransferase increased [Unknown]
  - Nodule [Unknown]
  - Nausea [Recovering/Resolving]
  - Skin lesion [Recovering/Resolving]
  - COVID-19 [Recovered/Resolved]
  - Erythema [Unknown]
  - Swelling [Unknown]

NARRATIVE: CASE EVENT DATE: 20220601
